FAERS Safety Report 14152624 (Version 1)
Quarter: 2017Q4

REPORT INFORMATION
  Report Type: Spontaneous
  Country: US (occurrence: US)
  Receive Date: 20171102
  Receipt Date: 20171102
  Transmission Date: 20180321
  Serious: Yes (Hospitalization, Disabling)
  Sender: FDA-Public Use
  Company Number: None

PATIENT
  Age: 32 Year
  Sex: Female
  Weight: 92.25 kg

DRUGS (6)
  1. LAMOTRIGINE. [Suspect]
     Active Substance: LAMOTRIGINE
     Indication: BIPOLAR DISORDER
     Dosage: ?          QUANTITY:1 TABLET(S);?
     Route: 048
  2. LOSARTAN. [Concomitant]
     Active Substance: LOSARTAN
  3. FISH OIL [Concomitant]
     Active Substance: FISH OIL
  4. COLACE [Concomitant]
     Active Substance: DOCUSATE SODIUM
  5. VITAMIN D [Concomitant]
     Active Substance: CHOLECALCIFEROL
  6. CAMILA [Concomitant]
     Active Substance: NORETHINDRONE

REACTIONS (9)
  - Cognitive disorder [None]
  - Coordination abnormal [None]
  - Crying [None]
  - Feeling abnormal [None]
  - Anxiety [None]
  - Agitation [None]
  - Fine motor skill dysfunction [None]
  - Muscular weakness [None]
  - Aphasia [None]

NARRATIVE: CASE EVENT DATE: 20170801
